FAERS Safety Report 9250673 (Version 1)
Quarter: 2013Q2

REPORT INFORMATION
  Report Type: Report from Study
  Country: US (occurrence: US)
  Receive Date: 20130424
  Receipt Date: 20130424
  Transmission Date: 20140414
  Serious: Yes (Other)
  Sender: FDA-Public Use
  Company Number: US-JNJFOC-20130409127

PATIENT
  Sex: 0

DRUGS (1)
  1. REMICADE [Suspect]
     Indication: PRODUCT USED FOR UNKNOWN INDICATION
     Route: 042

REACTIONS (7)
  - Pain [Unknown]
  - Axillary mass [Unknown]
  - Pyrexia [Unknown]
  - Chills [Unknown]
  - Skin fissures [Unknown]
  - Drug ineffective [Unknown]
  - Fatigue [Unknown]
